FAERS Safety Report 10360129 (Version 1)
Quarter: 2014Q3

REPORT INFORMATION
  Report Type: Spontaneous
  Country: US (occurrence: None)
  Receive Date: 20140731
  Receipt Date: 20140731
  Transmission Date: 20150326
  Serious: Yes (Hospitalization)
  Sender: FDA-Public Use
  Company Number: None

PATIENT
  Age: 68 Year
  Sex: Male

DRUGS (2)
  1. SUTENT [Suspect]
     Active Substance: SUNITINIB MALATE
     Indication: HEPATIC CANCER
     Dosage: 12.5 MG 3 PO QD PO
     Route: 048
     Dates: start: 201406
  2. SUTENT [Suspect]
     Active Substance: SUNITINIB MALATE
     Indication: PANCREATIC CARCINOMA
     Dosage: 12.5 MG 3 PO QD PO
     Route: 048
     Dates: start: 201406

REACTIONS (1)
  - Hepatic haemorrhage [None]

NARRATIVE: CASE EVENT DATE: 20140726
